FAERS Safety Report 7159137-9 (Version None)
Quarter: 2010Q4

REPORT INFORMATION
  Report Type: 
  Country: None (occurrence: None)
  Receive Date: 20101214
  Receipt Date: 20100408
  Transmission Date: 20110411
  Serious: Yes (Hospitalization)
  Sender: FDA-Public Use
  Company Number: IT-SANOFI-AVENTIS-2010SA020485

PATIENT
  Age: 74 Year
  Sex: Male

DRUGS (2)
  1. ENOXAPARIN SODIUM [Suspect]
     Indication: THROMBOSIS PROPHYLAXIS
     Route: 058
     Dates: start: 20100223, end: 20100318
  2. DINTOINA [Suspect]
     Route: 048
     Dates: start: 20100223, end: 20100318

REACTIONS (3)
  - DERMATITIS BULLOUS [None]
  - OEDEMA MOUTH [None]
  - RASH ERYTHEMATOUS [None]
